FAERS Safety Report 9365928 (Version 9)
Quarter: 2014Q1

REPORT INFORMATION
  Report Type: Spontaneous
  Country: US (occurrence: US)
  Receive Date: 20130625
  Receipt Date: 20140115
  Transmission Date: 20141002
  Serious: Yes (Other)
  Sender: FDA-Public Use
  Company Number: US-PFIZER INC-2013187413

PATIENT
  Age: 61 Year
  Sex: Male
  Weight: 117 kg

DRUGS (7)
  1. SUTENT [Suspect]
     Indication: METASTATIC RENAL CELL CARCINOMA
     Dosage: 50 MG, DAILY (28 DAYS ON - 14 DAYS OFF)
     Dates: start: 20130417
  2. LY2510924 [Concomitant]
     Indication: METASTATIC RENAL CELL CARCINOMA
     Dosage: UNK
     Route: 058
  3. COLESE [Concomitant]
     Dosage: AS NEEDED
  4. SALT WATER ORAL RINSE [Concomitant]
     Dosage: UNK
     Route: 048
  5. HYDROCHLOROTHIAZIDE [Concomitant]
     Dosage: UNK
  6. HYDROCODONE [Concomitant]
     Dosage: UNK
  7. CENTRUM [Concomitant]
     Dosage: UNK

REACTIONS (24)
  - Rectal haemorrhage [Unknown]
  - Fatigue [Unknown]
  - Blood creatinine increased [Recovered/Resolved]
  - Hair colour changes [Unknown]
  - Constipation [Unknown]
  - Blood pressure increased [Unknown]
  - Oral pain [Unknown]
  - Pruritus [Unknown]
  - Headache [Unknown]
  - Dysgeusia [Unknown]
  - Skin lesion [Recovered/Resolved]
  - Ingrowing nail [Recovered/Resolved]
  - Weight decreased [Unknown]
  - Localised infection [Unknown]
  - Hyperkeratosis [Recovering/Resolving]
  - Pain in extremity [Recovering/Resolving]
  - Tooth fracture [Unknown]
  - Haemorrhoids [Unknown]
  - Haemoglobin decreased [Unknown]
  - Platelet count decreased [Unknown]
  - Decreased appetite [Unknown]
  - Epistaxis [Unknown]
  - Nail disorder [Unknown]
  - Red blood cell count decreased [Unknown]
